FAERS Safety Report 4360768-X (Version None)
Quarter: 2004Q2

REPORT INFORMATION
  Report Type: 
  Country: None (occurrence: None)
  Receive Date: 20040519
  Receipt Date: 20040504
  Transmission Date: 20050107
  Serious: Yes (Death)
  Sender: FDA-Public Use
  Company Number: A-US2004-06143

PATIENT
  Age: 50 Year
  Sex: Male

DRUGS (11)
  1. TRACLEER [Suspect]
     Indication: PULMONARY HYPERTENSION
     Dosage: SEE IMAGE
     Route: 048
     Dates: start: 20030801, end: 20031101
  2. TRACLEER [Suspect]
     Indication: PULMONARY HYPERTENSION
     Dosage: SEE IMAGE
     Route: 048
     Dates: start: 20031101, end: 20040501
  3. PREVACID [Concomitant]
  4. BEXTRA [Concomitant]
  5. LANOXIN [Concomitant]
  6. LASIX [Concomitant]
  7. COUMADIN [Concomitant]
  8. ZAROXOLYN [Concomitant]
  9. METOPROLOL (METOPROLOL) [Concomitant]
  10. ALLOPURINOL [Concomitant]
  11. ASPIRIN [Concomitant]

REACTIONS (1)
  - DEATH [None]
